FAERS Safety Report 8397507-1 (Version None)
Quarter: 2012Q2

REPORT INFORMATION
  Report Type: 
  Country: None (occurrence: None)
  Receive Date: 20120529
  Receipt Date: 20120529
  Transmission Date: 20120825
  Serious: Yes (Other)
  Sender: FDA-Public Use
  Company Number: None

PATIENT
  Sex: Male
  Weight: 81.6475 kg

DRUGS (1)
  1. CIPROFLOXACIN [Suspect]
     Indication: PROSTATITIS
     Dosage: 2X DAY PO
     Route: 048
     Dates: start: 20111216, end: 20120130

REACTIONS (2)
  - ANXIETY [None]
  - JUDGEMENT IMPAIRED [None]
